FAERS Safety Report 7860030-4 (Version None)
Quarter: 2011Q4

REPORT INFORMATION
  Report Type: 
  Country: None (occurrence: None)
  Receive Date: 20111025
  Receipt Date: 20111010
  Transmission Date: 20120403
  Serious: Yes (Hospitalization, Other)
  Sender: FDA-Public Use
  Company Number: 2011MA013454

PATIENT
  Age: 58 Year
  Sex: Female

DRUGS (4)
  1. OXALIPLATIN [Suspect]
     Indication: ADENOCARCINOMA
     Dosage: 85 MG/**2; ;IV
     Route: 042
  2. LEUCOVORIN SODIUM [Suspect]
     Indication: ADENOCARCINOMA
     Dosage: 200 MG/M**2; ;IV
     Route: 042
  3. IRINOTECAN HYDROCHLORIDE [Suspect]
     Indication: ADENOCARCINOMA
     Dosage: 150 MG/M**2;; IV
     Route: 042
  4. FLUOROURACIL [Suspect]
     Indication: ADENOCARCINOMA
     Dosage: 2000 MG/M**2; ;IV
     Route: 042

REACTIONS (2)
  - LEUKOPENIA [None]
  - GASTROINTESTINAL TOXICITY [None]
